FAERS Safety Report 8004878-4 (Version None)
Quarter: 2011Q4

REPORT INFORMATION
  Report Type: 
  Country: None (occurrence: None)
  Receive Date: 20111223
  Receipt Date: 20111223
  Transmission Date: 20120403
  Serious: Yes (Other)
  Sender: FDA-Public Use
  Company Number: None

PATIENT
  Sex: Female
  Weight: 51.709 kg

DRUGS (4)
  1. CALCIUM [Concomitant]
  2. ASPIRIN [Concomitant]
  3. RECLAST [Concomitant]
  4. PREDNISONE TAB [Suspect]

REACTIONS (1)
  - INSOMNIA [None]
